FAERS Safety Report 5482216-9 (Version None)
Quarter: 2007Q4

REPORT INFORMATION
  Report Type: 
  Country: None (occurrence: None)
  Receive Date: 20071011
  Receipt Date: 20070928
  Transmission Date: 20080405
  Serious: Yes (Death, Life-Threatening, Other)
  Sender: FDA-Public Use
  Company Number: JP-BRISTOL-MYERS SQUIBB COMPANY-13877741

PATIENT
  Age: 65 Year
  Sex: Male

DRUGS (9)
  1. IFOMIDE [Suspect]
     Indication: PROSTATE CANCER
     Dosage: 1.3G IV 19-JUL-2005 AND CONTINUED
     Route: 042
     Dates: start: 20050621
  2. TAXOL [Suspect]
     Indication: PROSTATE CANCER
     Dosage: 21-JUN-2005 TO 21-JUN-2005; 19-JUL-2005 TO 19-JUL-2005.
     Route: 041
     Dates: start: 20050621, end: 20050719
  3. AQUPLA [Suspect]
     Indication: PROSTATE CANCER
     Dosage: 50MG IV ON 19-JUL-2005
     Route: 042
     Dates: start: 20050621, end: 20050719
  4. LOXONIN [Suspect]
     Indication: PAIN IN EXTREMITY
     Dosage: 20-JUL-2005 TO 28-JUL-2005 AND 27-JUN-2005 TO 29-JUN-2005.
     Route: 048
     Dates: start: 20050627, end: 20050728
  5. METHOTREXATE [Concomitant]
     Indication: TRANSITIONAL CELL CARCINOMA
     Dates: start: 20050401
  6. DOXORUBICIN HCL [Concomitant]
     Indication: TRANSITIONAL CELL CARCINOMA
     Dates: start: 20050401
  7. CISPLATIN [Concomitant]
     Indication: TRANSITIONAL CELL CARCINOMA
     Dates: start: 20050401
  8. VINBLASTINE SULFATE [Concomitant]
     Indication: TRANSITIONAL CELL CARCINOMA
     Dates: start: 20050401
  9. CYTOTEC [Concomitant]
     Dosage: THERAPY DATES 27-JUN-2005 : UNKNOWN.
     Route: 048
     Dates: start: 20050720, end: 20050728

REACTIONS (8)
  - CYANOSIS [None]
  - DEPRESSED LEVEL OF CONSCIOUSNESS [None]
  - DISEASE PROGRESSION [None]
  - HAEMOGLOBIN DECREASED [None]
  - NEUTROPHIL COUNT DECREASED [None]
  - PAIN IN EXTREMITY [None]
  - RENAL FAILURE ACUTE [None]
  - RESPIRATORY FAILURE [None]
